FAERS Safety Report 8464248-1 (Version None)
Quarter: 2012Q2

REPORT INFORMATION
  Report Type: 
  Country: None (occurrence: None)
  Receive Date: 20120625
  Receipt Date: 20120620
  Transmission Date: 20120825
  Serious: Yes (Hospitalization)
  Sender: FDA-Public Use
  Company Number: FR-ROCHE-1057831

PATIENT
  Sex: Male
  Weight: 64 kg

DRUGS (11)
  1. VEMURAFENIB [Suspect]
     Indication: MALIGNANT MELANOMA
     Dosage: LAST DOSE PRIOR TO SAE ON 04/APR/2012.
     Route: 048
     Dates: start: 20120207, end: 20120411
  2. NIFLURIL [Concomitant]
     Route: 048
     Dates: start: 20120217, end: 20120306
  3. VEMURAFENIB [Suspect]
     Dosage: RESTARTED AT A REDUCED DOSE
     Route: 048
  4. DIPROSONE [Concomitant]
     Dosage: TRANSCUTANEOUS
     Route: 050
     Dates: start: 20120306
  5. ACETAMINOPHEN [Concomitant]
     Dosage: AS REQUIRED.
     Route: 048
     Dates: start: 20120201, end: 20120306
  6. ACETAMINOPHEN [Concomitant]
     Dosage: AS REQUIRED.
     Dates: start: 20120405, end: 20120412
  7. PERUBORE [Concomitant]
     Dosage: INHALATIONAL
     Route: 050
     Dates: start: 20120306, end: 20120317
  8. AUGMENTIN '125' [Concomitant]
     Route: 048
     Dates: start: 20120306, end: 20120317
  9. RHINOFEBRAL [Concomitant]
     Dosage: AS REQUIRED.
     Route: 048
     Dates: start: 20120225, end: 20120306
  10. RHINOFEBRAL [Concomitant]
     Route: 048
     Dates: start: 20120306, end: 20120317
  11. BIAFINE [Concomitant]
     Dosage: TRANSCUTANEOUS, AS REQUIRED.
     Dates: start: 20120517, end: 20120520

REACTIONS (1)
  - HYPERTHYROIDISM [None]
